FAERS Safety Report 4859681-0 (Version None)
Quarter: 2005Q4

REPORT INFORMATION
  Report Type: 
  Country: None (occurrence: None)
  Receive Date: 20051215
  Receipt Date: 20051209
  Transmission Date: 20060501
  Serious: Yes (Hospitalization)
  Sender: FDA-Public Use
  Company Number: 2005BI018837

PATIENT
  Age: 75 Year
  Sex: Female
  Weight: 60 kg

DRUGS (4)
  1. AVONEX [Suspect]
     Indication: MULTIPLE SCLEROSIS
     Dosage: 30 UG;QW; IM
     Route: 030
     Dates: start: 19991001, end: 20030101
  2. AVONEX [Suspect]
     Indication: MULTIPLE SCLEROSIS
     Dosage: 30 UG; QW; IM
     Route: 030
     Dates: start: 20030101
  3. YHYROXINE [Concomitant]
  4. COZAAR [Concomitant]

REACTIONS (3)
  - AORTIC ANEURYSM [None]
  - AORTIC VALVE INCOMPETENCE [None]
  - CHILLS [None]
